FAERS Safety Report 18555476 (Version 1)
Quarter: 2020Q4

REPORT INFORMATION
  Report Type: Spontaneous
  Country: FR (occurrence: FR)
  Receive Date: 20201127
  Receipt Date: 20201127
  Transmission Date: 20210114
  Serious: Yes (Other)
  Sender: FDA-Public Use
  Company Number: FR-009507513-2011FRA015316

PATIENT
  Age: 44 Year
  Sex: Male
  Weight: 84 kg

DRUGS (1)
  1. CELESTENE (BETAMETHASONE) [Suspect]
     Active Substance: BETAMETHASONE
     Indication: ASYMPTOMATIC COVID-19
     Dosage: 6 MILLIGRAM, QD
     Route: 048
     Dates: start: 20201006, end: 20201010

REACTIONS (2)
  - Infection [Recovered/Resolved]
  - Asymptomatic COVID-19 [Recovered/Resolved]

NARRATIVE: CASE EVENT DATE: 20201010
